FAERS Safety Report 23652901 (Version 2)
Quarter: 2024Q2

REPORT INFORMATION
  Report Type: Spontaneous
  Country: US (occurrence: US)
  Receive Date: 20240320
  Receipt Date: 20240405
  Transmission Date: 20240716
  Serious: Yes (Life-Threatening, Hospitalization, Other)
  Sender: FDA-Public Use
  Company Number: None

PATIENT
  Age: 40 Year
  Sex: Female
  Weight: 54.5 kg

DRUGS (14)
  1. BUDESONIDE [Suspect]
     Active Substance: BUDESONIDE
     Indication: Colitis microscopic
     Dosage: FOR 3 MO?FROM AUG TO NOV
  2. BUDESONIDE [Suspect]
     Active Substance: BUDESONIDE
     Dosage: FOR 3 MO?FROM AUG TO NOV
  3. BUDESONIDE [Suspect]
     Active Substance: BUDESONIDE
     Dates: start: 20220828, end: 20221103
  4. BUDESONIDE [Suspect]
     Active Substance: BUDESONIDE
     Dates: start: 20220825, end: 20221103
  5. TRAZODONE [Suspect]
     Active Substance: TRAZODONE HYDROCHLORIDE
     Indication: Insomnia
     Dosage: STARTED IN JUN
  6. TRAZODONE [Suspect]
     Active Substance: TRAZODONE HYDROCHLORIDE
     Dosage: FOR 5 MO
  7. TRAZODONE [Suspect]
     Active Substance: TRAZODONE HYDROCHLORIDE
     Dosage: FOR 5 MO
     Route: 048
     Dates: start: 20220613, end: 20221129
  8. PAROXETINE [Suspect]
     Active Substance: PAROXETINE
     Indication: Depression
     Dosage: FOR 5 MO
  9. PAROXETINE [Suspect]
     Active Substance: PAROXETINE
     Indication: Anxiety
     Dosage: FOR 5 MO
  10. PAROXETINE [Suspect]
     Active Substance: PAROXETINE
     Route: 048
     Dates: start: 20220613, end: 20221129
  11. LISDEXAMFETAMINE [Suspect]
     Active Substance: LISDEXAMFETAMINE
     Indication: Attention deficit hyperactivity disorder
     Dosage: FOR 4 MO
  12. LISDEXAMFETAMINE [Suspect]
     Active Substance: LISDEXAMFETAMINE
     Indication: Disturbance in attention
     Dosage: FOR 4 MO
  13. LISDEXAMFETAMINE [Suspect]
     Active Substance: LISDEXAMFETAMINE
     Dosage: FOR 4 MO?STARTED IN JUL
     Route: 048
     Dates: start: 20220711, end: 20221129
  14. MOLNUPIRAVIR [Concomitant]
     Active Substance: MOLNUPIRAVIR
     Indication: COVID-19
     Dosage: STARTED AROUND SEP

REACTIONS (7)
  - Acute hepatic failure [Unknown]
  - Drug-induced liver injury [Recovered/Resolved]
  - Hepatic encephalopathy [Recovered/Resolved]
  - Chronic hepatitis [Unknown]
  - Hepatitis acute [Unknown]
  - Splenomegaly [Unknown]
  - Drug interaction [Recovered/Resolved]

NARRATIVE: CASE EVENT DATE: 20220101
